FAERS Safety Report 4834649-9 (Version None)
Quarter: 2005Q4

REPORT INFORMATION
  Report Type: 
  Country: None (occurrence: None)
  Receive Date: 20051122
  Receipt Date: 20050608
  Transmission Date: 20060501
  Serious: No
  Sender: FDA-Public Use
  Company Number: US-BRISTOL-MYERS SQUIBB COMPANY-12997516

PATIENT
  Age: 57 Year
  Sex: Male
  Weight: 69 kg

DRUGS (5)
  1. PRAVACHOL [Suspect]
     Indication: GLUCOSE TOLERANCE IMPAIRED
  2. AVANDAMET [Concomitant]
  3. PROVIGIL [Concomitant]
  4. AMBIEN [Concomitant]
  5. ALLEGRA [Concomitant]

REACTIONS (2)
  - ARTHRALGIA [None]
  - MUSCULOSKELETAL STIFFNESS [None]
